FAERS Safety Report 10088957 (Version 1)
Quarter: 2014Q2

REPORT INFORMATION
  Report Type: Spontaneous
  Country: US (occurrence: US)
  Receive Date: 20140421
  Receipt Date: 20140421
  Transmission Date: 20141212
  Serious: No
  Sender: FDA-Public Use
  Company Number: US-DRREDDYS-USA/USA/14/0037616

PATIENT
  Age: 35 Year
  Sex: Male

DRUGS (2)
  1. ZENATANE [Suspect]
     Indication: ACNE
     Route: 048
     Dates: start: 201308
  2. ZENATANE [Suspect]
     Dosage: 40 MG CAPSULES TAKEN ONCE OR TWICE DAILY, ON ALTERNATING DAYS
     Route: 048

REACTIONS (1)
  - Dry skin [Not Recovered/Not Resolved]
